FAERS Safety Report 7501988-2 (Version None)
Quarter: 2011Q2

REPORT INFORMATION
  Report Type: 
  Country: None (occurrence: None)
  Receive Date: 20110525
  Receipt Date: 20110519
  Transmission Date: 20111010
  Serious: No
  Sender: FDA-Public Use
  Company Number: US-PFIZER INC-2011101009

PATIENT
  Sex: Male

DRUGS (5)
  1. AMLODIPINE BESYLATE [Suspect]
     Dosage: 5 MG DAILY
     Route: 048
     Dates: start: 20110517
  2. AMLODIPINE BESYLATE [Suspect]
     Dosage: HALF A TABLET DAILY
     Route: 048
     Dates: start: 20110501
  3. AMLODIPINE BESYLATE [Suspect]
     Indication: HYPERTENSION
     Dosage: 5 MG, DAILY
     Route: 048
     Dates: start: 20110501
  4. SYNTHROID [Concomitant]
     Indication: THYROID DISORDER
     Dosage: UNK
     Route: 048
  5. LISINOPRIL [Suspect]
     Indication: HYPERTENSION
     Dosage: 10 MG, DAILY
     Route: 048

REACTIONS (6)
  - FATIGUE [None]
  - COUGH [None]
  - DRUG ADMINISTRATION ERROR [None]
  - FEELING ABNORMAL [None]
  - DRUG INEFFECTIVE [None]
  - HEAD DISCOMFORT [None]
